FAERS Safety Report 17924173 (Version 1)
Quarter: 2020Q2

REPORT INFORMATION
  Report Type: Spontaneous
  Country: US (occurrence: US)
  Receive Date: 20200622
  Receipt Date: 20200622
  Transmission Date: 20200714
  Serious: Yes (Hospitalization)
  Sender: FDA-Public Use
  Company Number: None

PATIENT
  Sex: Female

DRUGS (1)
  1. STELARA [Suspect]
     Active Substance: USTEKINUMAB
     Indication: COLITIS
     Dosage: ?          OTHER FREQUENCY:EVERY 8 WEEKS;?
     Route: 030
     Dates: start: 20200107

REACTIONS (1)
  - Dehydration [None]
